FAERS Safety Report 5002238-1 (Version None)
Quarter: 2006Q2

REPORT INFORMATION
  Report Type: 
  Country: None (occurrence: None)
  Receive Date: 20060515
  Receipt Date: 20060418
  Transmission Date: 20061013
  Serious: Yes (Life-Threatening, Hospitalization)
  Sender: FDA-Public Use
  Company Number: US-BRISTOL-MYERS SQUIBB COMPANY-13350384

PATIENT
  Age: 64 Year
  Sex: Male
  Weight: 126 kg

DRUGS (11)
  1. ERBITUX [Suspect]
     Indication: NEOPLASM MALIGNANT
     Dosage: FIRST DOSE.
     Route: 042
     Dates: start: 20060417, end: 20060417
  2. BENADRYL [Concomitant]
     Indication: PREMEDICATION
     Route: 042
     Dates: start: 20060417, end: 20060417
  3. ACTOS [Concomitant]
  4. LEXAPRO [Concomitant]
  5. PREVACID [Concomitant]
  6. MIRALAX [Concomitant]
  7. POTASSIUM CHLORIDE [Concomitant]
  8. ROBITUSSIN [Concomitant]
  9. ALBUTEROL SULFATE AUTOHALER [Concomitant]
  10. ATROVENT [Concomitant]
  11. XANAX [Concomitant]

REACTIONS (2)
  - CARDIO-RESPIRATORY ARREST [None]
  - DYSPNOEA [None]
